FAERS Safety Report 13854623 (Version 1)
Quarter: 2017Q3

REPORT INFORMATION
  Report Type: Spontaneous
  Country: US (occurrence: US)
  Receive Date: 20170810
  Receipt Date: 20170810
  Transmission Date: 20171127
  Serious: No
  Sender: FDA-Public Use
  Company Number: US-TAKEDA-2017TUS016514

PATIENT
  Age: 34 Year
  Sex: Female
  Weight: 66.21 kg

DRUGS (5)
  1. ENTYVIO [Suspect]
     Active Substance: VEDOLIZUMAB
     Dosage: UNK UNK, Q4WEEKS
     Route: 042
     Dates: start: 20170705
  2. TACROLIMUS. [Concomitant]
     Active Substance: TACROLIMUS
     Dosage: UNK UNK, QD
     Route: 048
  3. ENTYVIO [Suspect]
     Active Substance: VEDOLIZUMAB
     Dosage: UNK
     Route: 042
  4. ENTYVIO [Suspect]
     Active Substance: VEDOLIZUMAB
     Indication: CROHN^S DISEASE
     Dosage: UNK
     Route: 042
     Dates: start: 201607
  5. EMEND [Concomitant]
     Active Substance: APREPITANT
     Dosage: UNK UNK, QD
     Route: 048
     Dates: start: 20170705

REACTIONS (2)
  - No adverse event [Unknown]
  - Off label use [Unknown]
